FAERS Safety Report 8017854-2 (Version None)
Quarter: 2012Q1

REPORT INFORMATION
  Report Type: 
  Country: None (occurrence: None)
  Receive Date: 20120103
  Receipt Date: 20111227
  Transmission Date: 20120608
  Serious: No
  Sender: FDA-Public Use
  Company Number: US-PFIZER INC-2011231195

PATIENT
  Sex: Male

DRUGS (1)
  1. NIFEDIPINE [Suspect]
     Dosage: 30 MG, UNK

REACTIONS (4)
  - DRUG INEFFECTIVE [None]
  - ANXIETY [None]
  - CHEST DISCOMFORT [None]
  - PALPITATIONS [None]
